FAERS Safety Report 13446401 (Version 1)
Quarter: 2017Q2

REPORT INFORMATION
  Report Type: Other
  Country: IT (occurrence: IT)
  Receive Date: 20170417
  Receipt Date: 20170417
  Transmission Date: 20170830
  Serious: Yes (Other)
  Sender: FDA-Public Use
  Company Number: IT-MACLEODS PHARMACEUTICALS US LTD-MAC2017004684

PATIENT

DRUGS (2)
  1. DABIGATRAN [Suspect]
     Active Substance: DABIGATRAN
     Indication: PROPHYLAXIS
     Dosage: 110 MG, BID
     Route: 065
  2. CLOPIDOGREL FILM COATED TABLET 75 MG [Suspect]
     Active Substance: CLOPIDOGREL BISULFATE
     Indication: PROPHYLAXIS
     Dosage: 75 MG, QD
     Route: 048

REACTIONS (5)
  - Parinaud syndrome [Unknown]
  - Dizziness [Unknown]
  - Diplopia [Unknown]
  - Lacunar stroke [Unknown]
  - Nystagmus [Unknown]
